FAERS Safety Report 6250033-8 (Version None)
Quarter: 2009Q2

REPORT INFORMATION
  Report Type: 
  Country: None (occurrence: None)
  Receive Date: 20090629
  Receipt Date: 20090624
  Transmission Date: 20091009
  Serious: Yes (Death)
  Sender: FDA-Public Use
  Company Number: PHHY2009IN25549

PATIENT
  Age: 71 Year
  Sex: Male

DRUGS (1)
  1. ASUNRA [Suspect]
     Dosage: 400 MG 2 TABLETS DAILY

REACTIONS (1)
  - MYOCARDIAL INFARCTION [None]
